FAERS Safety Report 10270008 (Version 1)
Quarter: 2014Q2

REPORT INFORMATION
  Report Type: Spontaneous
  Country: US (occurrence: None)
  Receive Date: 20140626
  Receipt Date: 20140626
  Transmission Date: 20141212
  Serious: Yes (Life-Threatening, Disabling, Other)
  Sender: FDA-Public Use
  Company Number: None

PATIENT
  Age: 88 Year
  Sex: Male
  Weight: 63.5 kg

DRUGS (5)
  1. CIPROFLOXACIN [Suspect]
     Indication: URINARY TRACT INFECTION
     Route: 048
     Dates: start: 20140430, end: 20140505
  2. VITAMIN B12 [Concomitant]
  3. VITAMIN C [Concomitant]
  4. VITAMIN D3 [Concomitant]
  5. GLUCOSAMINE (CHONDROITIN, MSM) [Concomitant]

REACTIONS (13)
  - Dizziness [None]
  - Somnolence [None]
  - Headache [None]
  - Muscular weakness [None]
  - Vision blurred [None]
  - Fatigue [None]
  - Decreased appetite [None]
  - Hypoaesthesia [None]
  - Tendon pain [None]
  - Arthralgia [None]
  - Fatigue [None]
  - Balance disorder [None]
  - Decreased activity [None]
